FAERS Safety Report 8363316-2 (Version None)
Quarter: 2012Q2

REPORT INFORMATION
  Report Type: 
  Country: None (occurrence: None)
  Receive Date: 20120516
  Receipt Date: 20120514
  Transmission Date: 20120825
  Serious: Yes (Other)
  Sender: FDA-Public Use
  Company Number: US-PFIZER INC-2012117636

PATIENT
  Sex: Male
  Weight: 100 kg

DRUGS (1)
  1. NEURONTIN [Suspect]
     Indication: NEURALGIA
     Dosage: 800 MG, 4X/DAY
     Dates: start: 20080101, end: 20110101

REACTIONS (2)
  - MONOPLEGIA [None]
  - FALL [None]
